FAERS Safety Report 23651182 (Version 1)
Quarter: 2024Q1

REPORT INFORMATION
  Report Type: Spontaneous
  Country: US (occurrence: US)
  Receive Date: 20240320
  Receipt Date: 20240320
  Transmission Date: 20240410
  Serious: Yes (Other)
  Sender: FDA-Public Use
  Company Number: US-SANDOZ-SDZ2024US028418

PATIENT
  Age: 69 Year
  Sex: Female

DRUGS (8)
  1. TREPROSTINIL SODIUM [Suspect]
     Active Substance: TREPROSTINIL SODIUM
     Indication: Pulmonary arterial hypertension
     Dosage: 18 ?G, QID, INHALATION
     Route: 065
     Dates: start: 202401
  2. TREPROSTINIL SODIUM [Suspect]
     Active Substance: TREPROSTINIL SODIUM
     Dosage: 24 ?G, QID, INHALATION
     Route: 065
  3. TREPROSTINIL SODIUM [Suspect]
     Active Substance: TREPROSTINIL SODIUM
     Dosage: 24 ?G, QID, INHALATION
     Route: 065
  4. TREPROSTINIL SODIUM [Suspect]
     Active Substance: TREPROSTINIL SODIUM
     Dosage: 30 ?G, QID, INHALATION
     Route: 065
  5. TREPROSTINIL SODIUM [Suspect]
     Active Substance: TREPROSTINIL SODIUM
     Dosage: 36 ?G, QID, INHALATION
     Route: 065
  6. TREPROSTINIL SODIUM [Suspect]
     Active Substance: TREPROSTINIL SODIUM
     Dosage: UNK, INHALATION
     Route: 065
     Dates: start: 202401
  7. ZOFRAN [Suspect]
     Active Substance: ONDANSETRON HYDROCHLORIDE
     Indication: Nausea
     Dosage: UNK
     Route: 065
  8. LOSARTAN [Concomitant]
     Active Substance: LOSARTAN
     Indication: Product used for unknown indication
     Dosage: UNK
     Route: 065

REACTIONS (25)
  - Ascites [Unknown]
  - Fatigue [Unknown]
  - Dyspnoea exertional [Unknown]
  - Fluid retention [Unknown]
  - Chest pain [Unknown]
  - Productive cough [Unknown]
  - Cough [Unknown]
  - Headache [Unknown]
  - Oedema peripheral [Unknown]
  - Pain in jaw [Unknown]
  - Pain [Unknown]
  - Oedema [Unknown]
  - Arthralgia [Unknown]
  - Dyspnoea [Unknown]
  - Pain in extremity [Unknown]
  - Dizziness [Unknown]
  - Hypertension [Unknown]
  - Nausea [Unknown]
  - Constipation [Unknown]
  - Retching [Unknown]
  - Face oedema [Unknown]
  - Localised oedema [Unknown]
  - Jugular vein distension [Unknown]
  - Haemochromatosis [Unknown]
  - Breath sounds abnormal [Unknown]

NARRATIVE: CASE EVENT DATE: 20240101
